FAERS Safety Report 7522274-0 (Version None)
Quarter: 2011Q2

REPORT INFORMATION
  Report Type: 
  Country: None (occurrence: None)
  Receive Date: 20110603
  Receipt Date: 20110502
  Transmission Date: 20111010
  Serious: No
  Sender: FDA-Public Use
  Company Number: US-BAYER-2011-039697

PATIENT
  Age: 50 Year
  Sex: Female

DRUGS (3)
  1. HYDROCHLOROTHIAZIDE [Concomitant]
     Indication: ISCHAEMIC HEART DISEASE PROPHYLAXIS
     Dosage: UNK
     Route: 048
     Dates: start: 20060101
  2. ALEVE (CAPLET) [Suspect]
     Indication: ANALGESIC THERAPY
     Route: 048
  3. ALEVE (CAPLET) [Suspect]
     Indication: CARPAL TUNNEL SYNDROME

REACTIONS (1)
  - CARPAL TUNNEL SYNDROME [None]
